FAERS Safety Report 18498913 (Version 2)
Quarter: 2021Q3

REPORT INFORMATION
  Report Type: Spontaneous
  Country: DE (occurrence: DE)
  Receive Date: 20201113
  Receipt Date: 20210823
  Transmission Date: 20211014
  Serious: Yes (Hospitalization, Other)
  Sender: FDA-Public Use
  Company Number: DE-SA-2020SA316547

PATIENT
  Age: 36 Year
  Sex: Female

DRUGS (2)
  1. AUBAGIO [Suspect]
     Active Substance: TERIFLUNOMIDE
     Indication: RELAPSING-REMITTING MULTIPLE SCLEROSIS
     Dosage: UNK UNK, QD
     Route: 048
     Dates: start: 201406, end: 202010
  2. NOVALGIN (METAMIZOLE SODIUM) [Interacting]
     Active Substance: METAMIZOLE SODIUM
     Indication: APPENDICECTOMY
     Dosage: UNK, 3 DAYS
     Dates: start: 202010, end: 20201008

REACTIONS (5)
  - Appendicitis [Unknown]
  - Neutropenia [Unknown]
  - Drug interaction [Not Recovered/Not Resolved]
  - Hypersensitivity [Not Recovered/Not Resolved]
  - Leukopenia [Unknown]
